FAERS Safety Report 9793373 (Version 3)
Quarter: 2014Q2

REPORT INFORMATION
  Report Type: Report from Study
  Country: JP (occurrence: JP)
  Receive Date: 20140102
  Receipt Date: 20140610
  Transmission Date: 20141212
  Serious: Yes (Hospitalization, Other)
  Sender: FDA-Public Use
  Company Number: JP-CELGENEUS-087-50794-13100070

PATIENT
  Age: 68 Year
  Sex: Female
  Weight: 40 kg

DRUGS (19)
  1. VIDAZA [Suspect]
     Indication: MYELODYSPLASTIC SYNDROME
     Dosage: 75 MILLIGRAM/SQ. METER
     Route: 058
     Dates: start: 20130228, end: 20130305
  2. VIDAZA [Suspect]
     Dosage: 75 MILLIGRAM/SQ. METER
     Route: 065
     Dates: start: 20130406, end: 20130412
  3. REVLIMID [Suspect]
     Indication: PRODUCT USED FOR UNKNOWN INDICATION
     Route: 048
     Dates: start: 20130307, end: 20130320
  4. REVLIMID [Suspect]
     Route: 048
     Dates: start: 20130413, end: 20130428
  5. POLYMYXIN B SULFATE [Concomitant]
     Indication: PRODUCT USED FOR UNKNOWN INDICATION
     Route: 065
  6. ITRIZOLE [Concomitant]
     Indication: PRODUCT USED FOR UNKNOWN INDICATION
     Route: 065
     Dates: end: 20130429
  7. CRESTOR [Concomitant]
     Indication: PRODUCT USED FOR UNKNOWN INDICATION
     Route: 065
     Dates: end: 20130530
  8. ADALAT L [Concomitant]
     Indication: PRODUCT USED FOR UNKNOWN INDICATION
     Route: 065
     Dates: end: 20130429
  9. ADALAT L [Concomitant]
     Route: 065
     Dates: start: 20130430
  10. EXJADE [Concomitant]
     Indication: PRODUCT USED FOR UNKNOWN INDICATION
     Route: 065
     Dates: start: 20130413, end: 20130428
  11. EXJADE [Concomitant]
     Route: 065
     Dates: start: 20130518
  12. NAUZELIN OD [Concomitant]
     Indication: PRODUCT USED FOR UNKNOWN INDICATION
     Route: 065
     Dates: start: 20130406, end: 20130408
  13. MAXIPIME [Concomitant]
     Indication: PRODUCT USED FOR UNKNOWN INDICATION
     Route: 065
     Dates: start: 20130306, end: 20130318
  14. MAXIPIME [Concomitant]
     Route: 065
     Dates: start: 20130410, end: 20130420
  15. MEROPEN [Concomitant]
     Indication: PRODUCT USED FOR UNKNOWN INDICATION
     Route: 065
     Dates: start: 20130421, end: 20130423
  16. ALLEGRA [Concomitant]
     Indication: PRODUCT USED FOR UNKNOWN INDICATION
     Route: 065
     Dates: start: 20130422, end: 20130501
  17. CIPROXAN [Concomitant]
     Indication: PRODUCT USED FOR UNKNOWN INDICATION
     Route: 065
     Dates: start: 20130425, end: 20130503
  18. HABEKACIN [Concomitant]
     Indication: PRODUCT USED FOR UNKNOWN INDICATION
     Route: 065
     Dates: start: 20130412, end: 20130420
  19. VENILON [Concomitant]
     Indication: PRODUCT USED FOR UNKNOWN INDICATION
     Route: 065
     Dates: start: 20130425, end: 20130426

REACTIONS (5)
  - Pyrexia [Recovering/Resolving]
  - Rash generalised [Recovering/Resolving]
  - Pyrexia [Recovering/Resolving]
  - C-reactive protein increased [Recovering/Resolving]
  - Nausea [Recovered/Resolved]
